FAERS Safety Report 7992227-7 (Version None)
Quarter: 2011Q4

REPORT INFORMATION
  Report Type: 
  Country: None (occurrence: None)
  Receive Date: 20111219
  Receipt Date: 20111208
  Transmission Date: 20120403
  Serious: Yes (Disabling, Other)
  Sender: FDA-Public Use
  Company Number: CA-ELI_LILLY_AND_COMPANY-CA201111002403

PATIENT
  Age: 58 Year
  Sex: Male
  Weight: 113.38 kg

DRUGS (28)
  1. HYDROCHLOROTHIAZIDE [Concomitant]
     Indication: BLOOD PRESSURE
     Dosage: 25 MG, QD
  2. LAX-A-DAY [Concomitant]
     Indication: CONSTIPATION
     Dosage: UNK
  3. CALCIUM [Concomitant]
     Indication: VITAMIN SUPPLEMENTATION
     Dosage: 500 MG, QD
  4. CLOTRIMADERM [Concomitant]
     Indication: SKIN DISCOMFORT
     Dosage: 10 DF, BID
     Route: 061
  5. MORPHINE SULFATE [Concomitant]
     Indication: PAIN
     Dosage: 50 MG, EACH EVENING
  6. ALENDRONATE SODIUM [Concomitant]
     Indication: BONE DISORDER
     Dosage: 70 MG, WEEKLY (1/W)
  7. APO-BACLOFEN [Concomitant]
     Indication: MUSCLE SPASMS
     Dosage: 20 MG, EVERY 4 HRS
  8. CRESTOR [Concomitant]
     Indication: BLOOD CHOLESTEROL
     Dosage: 10 MG, QD
  9. MORPHINE SULFATE [Concomitant]
     Dosage: 25 MG, EACH MORNING
  10. VIADERM-KC [Concomitant]
     Indication: SKIN DISCOMFORT
     Dosage: UNK, BID
     Route: 061
  11. RAMIPRIL [Concomitant]
     Indication: BLOOD PRESSURE
     Dosage: 10 MG, QD
  12. ELAVIL [Concomitant]
     Indication: INSOMNIA
     Dosage: 75 MG, QOD
  13. NOVASEN [Concomitant]
     Indication: PAIN
     Dosage: 650 MG, EVERY 4 HRS
  14. PMS DOCUSATE CALCIUM [Concomitant]
     Indication: CONSTIPATION
     Dosage: 240 MG, PRN
  15. SENNOSIDE [Concomitant]
     Indication: CONSTIPATION
     Dosage: 8.6 MG, BID
  16. CYMBALTA [Suspect]
     Dosage: UNK UNK, UNKNOWN
  17. D-TABS [Concomitant]
     Indication: VITAMIN SUPPLEMENTATION
     Dosage: 10000 IU, WEEKLY (1/W)
  18. METADOL [Concomitant]
     Indication: PAIN
     Dosage: 5 MG, TID
  19. CYMBALTA [Suspect]
     Indication: NEURALGIA
     Dosage: 30 MG, QD
     Route: 048
     Dates: start: 20110215, end: 20110221
  20. CYMBALTA [Suspect]
     Dosage: 60 MG, QD
     Route: 048
     Dates: start: 20110222, end: 20110426
  21. LANSOPRAZOLE [Concomitant]
     Indication: PROPHYLAXIS
     Dosage: 30 MG, EACH MORNING
  22. GLYBURIDE [Concomitant]
     Indication: DIABETES MELLITUS
     Dosage: 7.5 MG, BID
  23. METFORMIN HCL [Concomitant]
     Indication: DIABETES MELLITUS
     Dosage: 1 DF, TID
  24. ACETAMINOPHEN [Concomitant]
     Indication: PAIN
     Dosage: 1000 MG, EVERY 4 HRS
  25. DOM-ZOPICLONE [Concomitant]
     Indication: INSOMNIA
     Dosage: 7.5 MG, EACH EVENING
  26. SIMVASTATIN [Concomitant]
     Indication: PAIN
     Dosage: 5 MG, EVERY 4 HRS
  27. ELAVIL [Concomitant]
     Dosage: 150 MG, QOD
  28. METADOL [Concomitant]
     Dosage: 2.5 MG, TID

REACTIONS (10)
  - CHEST DISCOMFORT [None]
  - WEIGHT DECREASED [None]
  - POSTURE ABNORMAL [None]
  - DECREASED APPETITE [None]
  - ABDOMINAL PAIN UPPER [None]
  - MUSCULAR DYSTROPHY [None]
  - EATING DISORDER [None]
  - ABDOMINAL DISCOMFORT [None]
  - MUSCLE SPASMS [None]
  - MUSCLE ATROPHY [None]
